FAERS Safety Report 9868073 (Version 1)
Quarter: 2014Q1

REPORT INFORMATION
  Report Type: Spontaneous
  Country: IT (occurrence: IT)
  Receive Date: 20140204
  Receipt Date: 20140204
  Transmission Date: 20141002
  Serious: Yes (Death, Hospitalization)
  Sender: FDA-Public Use
  Company Number: IT-BAYER-2014-017395

PATIENT
  Age: 82 Year
  Sex: Female
  Weight: 50 kg

DRUGS (5)
  1. CARDIOASPIRIN [Suspect]
     Dosage: DAILY DOSE 100 MG
     Route: 048
     Dates: start: 20120101, end: 20131205
  2. ACTONEL [Concomitant]
     Dosage: DAILY DOSE 35 MG
     Route: 048
     Dates: start: 20120101, end: 20131205
  3. KCL-RETARD [Concomitant]
     Dosage: UNK
     Dates: start: 20120101, end: 20131205
  4. TAVOR [LORAZEPAM] [Concomitant]
     Dosage: UNK
     Dates: start: 20120101, end: 20131205
  5. NATECAL D [Concomitant]
     Dosage: UNK
     Dates: start: 20120101, end: 20131205

REACTIONS (1)
  - Cerebral haemorrhage [Fatal]
